FAERS Safety Report 9440378 (Version 1)
Quarter: 2013Q3

REPORT INFORMATION
  Report Type: Spontaneous
  Country: BR (occurrence: BR)
  Receive Date: 20130805
  Receipt Date: 20130805
  Transmission Date: 20140515
  Serious: Yes (Other)
  Sender: FDA-Public Use
  Company Number: BR-009507513-1307BRA016009

PATIENT
  Age: 33 Year
  Sex: Female
  Weight: 60 kg

DRUGS (2)
  1. NUVARING [Suspect]
     Indication: CONTRACEPTION
     Dosage: UNK
     Route: 067
  2. NUVARING [Suspect]
     Dosage: UNK
     Route: 067
     Dates: start: 20130709, end: 20130730

REACTIONS (5)
  - Caesarean section [Unknown]
  - Unintended pregnancy [Unknown]
  - Menstruation irregular [Unknown]
  - Drug administration error [Unknown]
  - Drug administration error [Unknown]
